FAERS Safety Report 9768641 (Version 1)
Quarter: 2013Q4

REPORT INFORMATION
  Report Type: Spontaneous
  Country: US (occurrence: US)
  Receive Date: 20131218
  Receipt Date: 20131218
  Transmission Date: 20140711
  Serious: No
  Sender: FDA-Public Use
  Company Number: US-009507513-1312USA007437

PATIENT
  Age: 75 Year
  Sex: Male

DRUGS (4)
  1. JANUVIA [Suspect]
     Indication: TYPE 2 DIABETES MELLITUS
     Dosage: 100 MG, QD
     Route: 048
  2. METOPROLOL [Concomitant]
     Dosage: DOSAGE UNSPECIFIED
  3. PRINIVIL [Concomitant]
     Dosage: DOSAGE UNSPECIFIED
  4. AMLODIPINE [Concomitant]
     Dosage: DOSAGE UNSPECIFIED

REACTIONS (1)
  - Nephropathy [Not Recovered/Not Resolved]
